FAERS Safety Report 7527160-8 (Version None)
Quarter: 2011Q2

REPORT INFORMATION
  Report Type: 
  Country: None (occurrence: None)
  Receive Date: 20110607
  Receipt Date: 20110527
  Transmission Date: 20111010
  Serious: Yes (Hospitalization)
  Sender: FDA-Public Use
  Company Number: US-BIOGENIDEC-2010BI044909

PATIENT
  Age: 77 Year
  Sex: Female

DRUGS (2)
  1. AVONEX [Suspect]
     Route: 030
     Dates: start: 19990405
  2. AVONEX [Suspect]
     Indication: MULTIPLE SCLEROSIS
     Route: 030

REACTIONS (14)
  - ADHESION [None]
  - PERIORBITAL HAEMATOMA [None]
  - FACE INJURY [None]
  - LIMB INJURY [None]
  - BACK INJURY [None]
  - CONFUSIONAL STATE [None]
  - FALL [None]
  - GASTROINTESTINAL INJURY [None]
  - RENAL IMPAIRMENT [None]
  - EPISTAXIS [None]
  - HEMIPARESIS [None]
  - LOSS OF CONSCIOUSNESS [None]
  - SKIN ULCER [None]
  - WRIST FRACTURE [None]
